FAERS Safety Report 15798358 (Version 4)
Quarter: 2019Q3

REPORT INFORMATION
  Report Type: Spontaneous
  Country: BE (occurrence: BE)
  Receive Date: 20190108
  Receipt Date: 20190905
  Transmission Date: 20191004
  Serious: Yes (Hospitalization, Other)
  Sender: FDA-Public Use
  Company Number: BE-SA-2019SA001688

PATIENT
  Age: 34 Year
  Sex: Female

DRUGS (5)
  1. LEMTRADA [Suspect]
     Active Substance: ALEMTUZUMAB
     Dosage: UNK
     Route: 041
     Dates: start: 20170915, end: 20170917
  2. LEMTRADA [Suspect]
     Active Substance: ALEMTUZUMAB
     Dosage: UNK
     Route: 041
     Dates: start: 20160620, end: 20160624
  3. 4-AMINOPYRIDINE [Concomitant]
     Active Substance: DALFAMPRIDINE
     Dosage: 10 MG, TID
  4. MOVICOL [Concomitant]
     Active Substance: POLYETHYLENE GLYCOL 3350\POTASSIUM CHLORIDE\SODIUM BICARBONATE\SODIUM CHLORIDE
  5. CORTISONE [Concomitant]
     Active Substance: CORTISONE

REACTIONS (8)
  - Thrombocytopenia [Recovering/Resolving]
  - Cytomegalovirus infection [Unknown]
  - Ecchymosis [Unknown]
  - Haematoma [Unknown]
  - Anaemia [Unknown]
  - Epistaxis [Unknown]
  - Oxygen saturation decreased [Unknown]
  - Blood iron decreased [Unknown]

NARRATIVE: CASE EVENT DATE: 201812
